FAERS Safety Report 7483887-8 (Version None)
Quarter: 2011Q1

REPORT INFORMATION
  Report Type: 
  Country: None (occurrence: None)
  Receive Date: 20110309
  Receipt Date: 20110113
  Transmission Date: 20110831
  Serious: No
  Sender: FDA-Public Use
  Company Number: 2011SP001865

PATIENT
  Age: 60 Year
  Sex: Female

DRUGS (2)
  1. BUSPAR [Concomitant]
  2. SAPHRIS [Suspect]
     Indication: BIPOLAR DISORDER
     Dosage: 5 MG;BID;SL
     Route: 060
     Dates: start: 20110101, end: 20110110

REACTIONS (2)
  - OROPHARYNGEAL BLISTERING [None]
  - ORAL DISCOMFORT [None]
